FAERS Safety Report 6183539-0 (Version None)
Quarter: 2009Q2

REPORT INFORMATION
  Report Type: 
  Country: None (occurrence: None)
  Receive Date: 20090508
  Receipt Date: 20080817
  Transmission Date: 20091009
  Serious: Yes (Other)
  Sender: FDA-Public Use
  Company Number: US-RANBAXY-2008RR-23825

PATIENT
  Age: 19 Month
  Sex: Female

DRUGS (13)
  1. NAPROXEN [Suspect]
     Indication: JUVENILE ARTHRITIS
  2. IBUPROFEN [Suspect]
     Indication: JUVENILE ARTHRITIS
  3. METHOTREXATE [Suspect]
     Indication: JUVENILE ARTHRITIS
  4. ETANERCEPT [Suspect]
     Indication: JUVENILE ARTHRITIS
     Dosage: UNK
  5. INFLIXIMAB [Suspect]
     Indication: JUVENILE ARTHRITIS
     Dosage: 3 MG/KG, UNK
  6. LEFLUNOMIDE [Suspect]
     Indication: JUVENILE ARTHRITIS
  7. KINERET [Suspect]
     Indication: JUVENILE ARTHRITIS
  8. CYCLOPHOSPHAMIDE [Suspect]
     Indication: JUVENILE ARTHRITIS
  9. RITUXIMAB [Suspect]
     Indication: JUVENILE ARTHRITIS
  10. THALIDOMIDE [Suspect]
     Indication: JUVENILE ARTHRITIS
  11. PREDNISOLONE [Suspect]
     Indication: JUVENILE ARTHRITIS
  12. METHADONE [Suspect]
     Indication: JUVENILE ARTHRITIS
  13. ADALIMUMAB [Suspect]
     Indication: JUVENILE ARTHRITIS
     Dosage: 1 MG/KG, 1/WEEK

REACTIONS (1)
  - HODGKIN'S DISEASE [None]
